FAERS Safety Report 24221100 (Version 1)
Quarter: 2024Q3

REPORT INFORMATION
  Report Type: Spontaneous
  Country: CN (occurrence: CN)
  Receive Date: 20240819
  Receipt Date: 20240819
  Transmission Date: 20241016
  Serious: Yes (Hospitalization, Other)
  Sender: BAXTER
  Company Number: None

PATIENT
  Age: 1 Year
  Sex: Female
  Weight: 10 kg

DRUGS (5)
  1. CYCLOPHOSPHAMIDE [Suspect]
     Active Substance: CYCLOPHOSPHAMIDE
     Indication: Acute lymphocytic leukaemia
     Dosage: 0.45 G, ONE TIME IN ONE DAY (ST), DILUTED WITH 250 ML OF GLUCOSE AND SODIUM CHLORIDE (4:1)
     Route: 041
     Dates: start: 20240513, end: 20240513
  2. DEXTROSE\SODIUM CHLORIDE [Suspect]
     Active Substance: DEXTROSE\SODIUM CHLORIDE
     Indication: Medication dilution
     Dosage: 250 ML (4:1), ONE TIME IN ONE DAY (ST), USED TO DILUTE 0.45 G OF CYCLOPHOSPHAMIDE
     Route: 041
     Dates: start: 20240513, end: 20240513
  3. DEXTROSE\SODIUM CHLORIDE [Suspect]
     Active Substance: DEXTROSE\SODIUM CHLORIDE
     Dosage: 100 ML (4:1), Q12H, USED TO DILUTE 0.45 G OF CYTARABINE
     Route: 041
     Dates: start: 20240513, end: 20240516
  4. MERCAPTOPURINE [Suspect]
     Active Substance: MERCAPTOPURINE
     Indication: Acute lymphocytic leukaemia
     Dosage: 22.5 MG, QN
     Route: 048
     Dates: start: 20240513, end: 20240519
  5. CYTARABINE [Suspect]
     Active Substance: CYTARABINE
     Indication: Acute lymphocytic leukaemia
     Dosage: 0.45 G, Q12H, DILUTED WITH 100 ML OF GLUCOSE AND SODIUM CHLORIDE (4:1)
     Route: 041
     Dates: start: 20240513, end: 20240516

REACTIONS (1)
  - Myelosuppression [Recovering/Resolving]

NARRATIVE: CASE EVENT DATE: 20240521
